FAERS Safety Report 5375800-4 (Version None)
Quarter: 2007Q2

REPORT INFORMATION
  Report Type: 
  Country: None (occurrence: None)
  Receive Date: 20070628
  Receipt Date: 20070619
  Transmission Date: 20071010
  Serious: Yes (Hospitalization)
  Sender: FDA-Public Use
  Company Number: 2007324590

PATIENT
  Sex: Female

DRUGS (1)
  1. NICOTROL [Suspect]
     Dosage: UNSPECIFIED, TRANSDERMAL
     Route: 062
     Dates: start: 20000101

REACTIONS (1)
  - CHEST PAIN [None]
